FAERS Safety Report 7796877-2 (Version None)
Quarter: 2011Q4

REPORT INFORMATION
  Report Type: 
  Country: None (occurrence: None)
  Receive Date: 20111003
  Receipt Date: 20110920
  Transmission Date: 20120403
  Serious: Yes (Hospitalization, Disabling, Other)
  Sender: FDA-Public Use
  Company Number: ACO_26773_2011

PATIENT
  Sex: Male

DRUGS (3)
  1. VITAMIN D [Concomitant]
  2. AMPYRA [Suspect]
     Indication: GAIT DISTURBANCE
     Dosage: , Q12 HRS
     Dates: start: 20100829, end: 20110916
  3. VITAMINS NOS [Concomitant]

REACTIONS (55)
  - HEMIPARESIS [None]
  - ORAL PAIN [None]
  - EAR PAIN [None]
  - NON-CARDIAC CHEST PAIN [None]
  - STICKY SKIN [None]
  - DYSSTASIA [None]
  - TREMOR [None]
  - PERIPHERAL COLDNESS [None]
  - HEAT ILLNESS [None]
  - CHEST PAIN [None]
  - FUNCTIONAL GASTROINTESTINAL DISORDER [None]
  - INSOMNIA [None]
  - TINNITUS [None]
  - MUSCULOSKELETAL STIFFNESS [None]
  - SENSORY DISTURBANCE [None]
  - JOINT STIFFNESS [None]
  - FALL [None]
  - URINARY INCONTINENCE [None]
  - VITAMIN D DECREASED [None]
  - LACERATION [None]
  - BACK PAIN [None]
  - HEADACHE [None]
  - ASTHENIA [None]
  - JOINT LOCK [None]
  - SENSORY LOSS [None]
  - PAIN IN EXTREMITY [None]
  - GINGIVAL PAIN [None]
  - NECK PAIN [None]
  - WEIGHT BEARING DIFFICULTY [None]
  - WEIGHT INCREASED [None]
  - SENSATION OF HEAVINESS [None]
  - DRUG DOSE OMISSION [None]
  - DRUG INEFFECTIVE [None]
  - URINARY TRACT INFECTION [None]
  - BALANCE DISORDER [None]
  - HEART RATE DECREASED [None]
  - PAIN IN JAW [None]
  - ABDOMINAL PAIN UPPER [None]
  - LISTLESS [None]
  - EPISTAXIS [None]
  - ARTHRALGIA [None]
  - MUSCLE SPASMS [None]
  - GAIT DISTURBANCE [None]
  - JOINT INJURY [None]
  - POLLAKIURIA [None]
  - THERAPEUTIC RESPONSE UNEXPECTED [None]
  - FEELING ABNORMAL [None]
  - PSYCHOMOTOR HYPERACTIVITY [None]
  - PARAESTHESIA [None]
  - EYE PAIN [None]
  - MUSCULOSKELETAL PAIN [None]
  - PAIN [None]
  - ABDOMINAL DISCOMFORT [None]
  - COUGH [None]
  - APPLICATION SITE PAIN [None]
